FAERS Safety Report 5929878-7 (Version None)
Quarter: 2008Q4

REPORT INFORMATION
  Report Type: 
  Country: None (occurrence: None)
  Receive Date: 20081024
  Receipt Date: 20081013
  Transmission Date: 20090506
  Serious: Yes (Hospitalization)
  Sender: FDA-Public Use
  Company Number: ES-PFIZER INC-2008044907

PATIENT
  Age: 65 Year
  Sex: Female

DRUGS (2)
  1. LYRICA [Suspect]
     Indication: NEURALGIA
     Dosage: DAILY DOSE:125MG
     Route: 048
     Dates: start: 20060710, end: 20060817
  2. ULCOTENAL [Concomitant]
     Route: 048

REACTIONS (2)
  - JAUNDICE [None]
  - LIVER INJURY [None]
